FAERS Safety Report 4902271-1 (Version None)
Quarter: 2006Q1

REPORT INFORMATION
  Report Type: 
  Country: None (occurrence: None)
  Receive Date: 20060202
  Receipt Date: 20060124
  Transmission Date: 20060701
  Serious: Yes (Hospitalization, Other)
  Sender: FDA-Public Use
  Company Number: 2005050445

PATIENT
  Age: 80 Year
  Sex: Male
  Weight: 81.6475 kg

DRUGS (11)
  1. NORVASC [Suspect]
     Indication: HYPERTENSION
     Dosage: 5 MG (5 MG, 1 IN 1 D), ORAL
     Route: 048
  2. ZOLOFT [Concomitant]
  3. ALTACE [Concomitant]
  4. ACTOS [Concomitant]
  5. ASPIRIN [Concomitant]
  6. TOPROL-XL [Concomitant]
  7. FLOMAX ^CSL^ (TAMSULOSIN HYDROCHLORIDE) [Concomitant]
  8. LASIX [Concomitant]
  9. PRAVACHOL [Concomitant]
  10. NIASPAN [Concomitant]
  11. FOLTX (CYANOCOBALAMIN, FOLIC ACID, PYRIDOXINE) [Concomitant]

REACTIONS (6)
  - CAROTID ARTERY DISSECTION [None]
  - DRUG INTERACTION [None]
  - ECZEMA ASTEATOTIC [None]
  - QUADRUPLE VESSEL BYPASS GRAFT [None]
  - RASH [None]
  - SCRATCH [None]
